FAERS Safety Report 4921497-4 (Version None)
Quarter: 2006Q1

REPORT INFORMATION
  Report Type: 
  Country: None (occurrence: None)
  Receive Date: 20060224
  Receipt Date: 20050405
  Transmission Date: 20060701
  Serious: Yes (Death, Life-Threatening, Hospitalization, Other)
  Sender: FDA-Public Use
  Company Number: 200510679DE

PATIENT
  Age: 73 Year
  Sex: Female

DRUGS (6)
  1. TAXOTERE [Suspect]
     Indication: BREAST CANCER
     Dates: start: 20050401, end: 20050401
  2. ADRIAMYCIN PFS [Suspect]
     Indication: BREAST CANCER
     Dates: start: 20050401, end: 20050401
  3. CYCLOPHOSPHAMIDE [Suspect]
     Indication: BREAST CANCER
     Dates: start: 20050401, end: 20050401
  4. AMARYL [Concomitant]
  5. ASPIRIN [Concomitant]
  6. TORSEMIDE [Concomitant]

REACTIONS (12)
  - ACUTE RESPIRATORY DISTRESS SYNDROME [None]
  - ANAEMIA [None]
  - CIRCULATORY COLLAPSE [None]
  - CONSTIPATION [None]
  - DIALYSIS [None]
  - DYSPNOEA [None]
  - GENERAL PHYSICAL HEALTH DETERIORATION [None]
  - NAUSEA [None]
  - PULMONARY EMBOLISM [None]
  - PULMONARY MYCOSIS [None]
  - RENAL FAILURE ACUTE [None]
  - VOMITING [None]
